FAERS Safety Report 4761407-6 (Version None)
Quarter: 2005Q3

REPORT INFORMATION
  Report Type: 
  Country: None (occurrence: None)
  Receive Date: 20050906
  Receipt Date: 20050824
  Transmission Date: 20060218
  Serious: Yes (Death, Hospitalization)
  Sender: FDA-Public Use
  Company Number: GB-AMGEN-UK148019

PATIENT
  Sex: Male

DRUGS (8)
  1. KINERET [Suspect]
     Indication: RHEUMATOID ARTHRITIS
     Route: 058
     Dates: start: 20050311
  2. FOLIC ACID [Concomitant]
     Route: 065
  3. HYDROCORTISONE [Concomitant]
     Route: 065
  4. ATORVASTATIN CALCIUM [Concomitant]
     Route: 065
  5. PERINDOPRIL [Concomitant]
     Route: 065
  6. METHOTREXATE [Concomitant]
     Route: 048
  7. CELEBREX [Concomitant]
  8. WARFARIN [Concomitant]

REACTIONS (3)
  - NECROTISING FASCIITIS [None]
  - RENAL FAILURE [None]
  - STREPTOCOCCAL INFECTION [None]
